FAERS Safety Report 8496448 (Version 2)
Quarter: 2012Q4

REPORT INFORMATION
  Report Type: 
  Country: US (occurrence: US)
  Receive Date: 20120405
  Receipt Date: 20121023
  Transmission Date: 20130627
  Serious: Yes (Hospitalization)
  Sender: FDA-Public Use
  Company Number: US-FRI-1000029506

PATIENT
  Sex: Male

DRUGS (7)
  1. VIIBRYD [Suspect]
     Indication: DEPRESSION
     Dosage: 10 mg
     Route: 048
     Dates: start: 20110919, end: 20110925
  2. VIIBRYD [Suspect]
     Dosage: 20 mg
     Route: 048
     Dates: start: 20110926, end: 20111002
  3. VIIBRYD [Suspect]
     Indication: DEPRESSION
     Dosage: 40 mg
     Route: 048
     Dates: start: 20111003, end: 201110
  4. VIIBRYD [Suspect]
     Dosage: 20 mg
     Route: 048
     Dates: start: 201110
  5. KLONOPIN [Concomitant]
     Indication: INSOMNIA
  6. KLONOPIN [Concomitant]
     Indication: ANXIETY
  7. ROPINIROLE [Concomitant]
     Indication: RESTLESS LEGS SYNDROME

REACTIONS (2)
  - Asthma [Recovered/Resolved]
  - Feeling jittery [Recovered/Resolved]
